FAERS Safety Report 10362038 (Version 2)
Quarter: 2014Q3

REPORT INFORMATION
  Report Type: Spontaneous
  Country: US (occurrence: US)
  Receive Date: 20140805
  Receipt Date: 20140805
  Transmission Date: 20150326
  Serious: Yes (Hospitalization)
  Sender: FDA-Public Use
  Company Number: US-ROCHE-1444022

PATIENT
  Age: 58 Year
  Sex: Female

DRUGS (2)
  1. HERCEPTIN [Suspect]
     Active Substance: TRASTUZUMAB
     Indication: BREAST CANCER
     Dosage: FOR 18 WEEKS
     Route: 065
     Dates: start: 201209
  2. HERCEPTIN [Suspect]
     Active Substance: TRASTUZUMAB
     Dosage: 30 DOSES IN TOTAL , APPROX STOP DATE
     Route: 065
     Dates: end: 20130715

REACTIONS (2)
  - Pneumonia [Not Recovered/Not Resolved]
  - Depression [Unknown]

NARRATIVE: CASE EVENT DATE: 201307
